FAERS Safety Report 4364701-6 (Version None)
Quarter: 2004Q2

REPORT INFORMATION
  Report Type: 
  Country: None (occurrence: None)
  Receive Date: 20040525
  Receipt Date: 20040525
  Transmission Date: 20050107
  Serious: Yes (Other)
  Sender: FDA-Public Use
  Company Number: None

PATIENT
  Age: 41 Year
  Sex: Female
  Weight: 55 kg

DRUGS (1)
  1. MONTELUKAST 10MG MERCK [Suspect]
     Dosage: 10 MG ORAL
     Route: 048
     Dates: start: 20040218, end: 20040218

REACTIONS (12)
  - ABDOMINAL PAIN UPPER [None]
  - CHEST DISCOMFORT [None]
  - CHEST PAIN [None]
  - DIZZINESS [None]
  - DYSPNOEA [None]
  - EAR PAIN [None]
  - FEELING ABNORMAL [None]
  - HEADACHE [None]
  - PAIN IN JAW [None]
  - PALPITATIONS [None]
  - SEDATION [None]
  - SENSATION OF BLOCK IN EAR [None]
